FAERS Safety Report 22331891 (Version 5)
Quarter: 2023Q4

REPORT INFORMATION
  Report Type: Spontaneous
  Country: US (occurrence: US)
  Receive Date: 20230517
  Receipt Date: 20231130
  Transmission Date: 20240109
  Serious: Yes (Hospitalization, Other)
  Sender: FDA-Public Use
  Company Number: US-PFIZER INC-202300191342

PATIENT
  Age: 64 Year
  Sex: Female

DRUGS (2)
  1. BOSULIF [Suspect]
     Active Substance: BOSUTINIB MONOHYDRATE
     Dosage: 200 MG, 2 TAB(S), 1X/DAY
     Route: 048
     Dates: start: 20230304
  2. SPRYCEL [Concomitant]
     Active Substance: DASATINIB
     Dosage: 100 MG, 1X/DAY
     Dates: start: 20220812

REACTIONS (1)
  - Ankle fracture [Not Recovered/Not Resolved]
